FAERS Safety Report 8849771 (Version 1)
Quarter: 2012Q4

REPORT INFORMATION
  Report Type: 
  Country: US (occurrence: US)
  Receive Date: 20121019
  Receipt Date: 20121019
  Transmission Date: 20130627
  Serious: Yes (Other)
  Sender: FDA-Public Use
  Company Number: PHEH2012US020334

PATIENT
  Sex: Female

DRUGS (17)
  1. DIOVAN [Suspect]
     Indication: HYPERTENSION
     Dosage: 80 mg, QD
     Route: 048
     Dates: start: 20120308
  2. ASPIRIN [Concomitant]
     Indication: CARDIAC DISORDER
     Dosage: UNK UKN, UNK
  3. ALBUTEROL SULFATE [Concomitant]
     Indication: ASTHMA
     Dosage: UNK UKN, UNK
  4. ALTACE [Concomitant]
     Indication: BLOOD PRESSURE
     Dosage: UNK UKN, UNK
  5. CELEXA [Concomitant]
     Indication: ANXIETY
     Dosage: UNK UKN, UNK
  6. HYDROCHLOROTHIAZIDE [Concomitant]
     Dosage: UNK UKN, UNK
  7. HUMALOG [Concomitant]
     Indication: DIABETES MELLITUS
     Dosage: UNK UKN, UNK
  8. LANTUS [Concomitant]
     Indication: DIABETES MELLITUS
     Dosage: UNK UKN, UNK
  9. LIPITOR [Concomitant]
     Indication: BLOOD CHOLESTEROL
  10. NASONEX [Concomitant]
     Indication: HYPERSENSITIVITY
  11. PLAVIX [Concomitant]
     Dosage: UNK UKN, UNK
  12. SYMBICORT [Concomitant]
     Indication: HYPERSENSITIVITY
  13. SYMBICORT [Concomitant]
     Indication: ASTHMA
  14. VITAMIN D [Concomitant]
  15. METFORMIN [Concomitant]
     Indication: DIABETES MELLITUS
  16. PRILOSEC [Concomitant]
     Indication: GASTRIC DISORDER
  17. NORVASC [Concomitant]
     Indication: BLOOD PRESSURE

REACTIONS (1)
  - Cataract [Unknown]
